FAERS Safety Report 4763727-8 (Version None)
Quarter: 2005Q3

REPORT INFORMATION
  Report Type: 
  Country: None (occurrence: None)
  Receive Date: 20050908
  Receipt Date: 20050617
  Transmission Date: 20060218
  Serious: Yes (Hospitalization)
  Sender: FDA-Public Use
  Company Number: ES-NOVOPROD-245180

PATIENT
  Age: 75 Year
  Sex: Female
  Weight: 52 kg

DRUGS (6)
  1. NOVOMIX 30 FLEXPEN [Suspect]
     Indication: INSULIN-REQUIRING TYPE II DIABETES MELLITUS
     Dates: start: 20040701
  2. INDAPAMIDE [Concomitant]
  3. ORFIDAL [Concomitant]
  4. ADIRO [Concomitant]
  5. OMEPRAZOLE [Concomitant]
  6. AMOXICILINA + CLAVULANICO [Suspect]

REACTIONS (3)
  - DIARRHOEA [None]
  - LOWER RESPIRATORY TRACT INFECTION [None]
  - RASH ERYTHEMATOUS [None]
